FAERS Safety Report 12645890 (Version 4)
Quarter: 2017Q2

REPORT INFORMATION
  Report Type: Spontaneous
  Country: JP (occurrence: JP)
  Receive Date: 20160811
  Receipt Date: 20170530
  Transmission Date: 20170830
  Serious: Yes (Life-Threatening, Hospitalization)
  Sender: FDA-Public Use
  Company Number: JP-BAUSCH-BL-2016-019346

PATIENT
  Age: 71 Year
  Sex: Female

DRUGS (6)
  1. LAXOBERON [Suspect]
     Active Substance: SODIUM PICOSULFATE
     Indication: BOWEL PREPARATION
     Route: 048
     Dates: start: 20160721, end: 20160722
  2. GASCON [Concomitant]
     Active Substance: DIMETHICONE
     Indication: PRODUCT USED FOR UNKNOWN INDICATION
     Dates: start: 20160723, end: 20160723
  3. MOVIPREP [Suspect]
     Active Substance: ASCORBIC ACID\POLYETHYLENE GLYCOL 3350\POTASSIUM CHLORIDE\SODIUM ASCORBATE\SODIUM CHLORIDE\SODIUM SULFATE
     Indication: BOWEL PREPARATION
     Route: 048
     Dates: start: 20160723, end: 20160723
  4. MAGCOROL P [Suspect]
     Active Substance: MAGNESIUM CITRATE
     Indication: BOWEL PREPARATION
     Route: 048
     Dates: start: 20160722, end: 20160722
  5. MAGLAX [Suspect]
     Active Substance: MAGNESIUM OXIDE
     Indication: CONSTIPATION
     Dosage: 3 TABLETS IN 3 DIVIDED DOSES
     Route: 048
     Dates: start: 20160715, end: 20160723
  6. SENNOSIDE A+B [Concomitant]
     Active Substance: SENNOSIDES A AND B
     Indication: PRODUCT USED FOR UNKNOWN INDICATION
     Dates: start: 20160715, end: 20160723

REACTIONS (2)
  - Pneumonia aspiration [Recovering/Resolving]
  - Ileus [Recovering/Resolving]
